FAERS Safety Report 17809978 (Version 1)
Quarter: 2020Q2

REPORT INFORMATION
  Report Type: Spontaneous
  Country: TR (occurrence: TR)
  Receive Date: 20200520
  Receipt Date: 20200520
  Transmission Date: 20200714
  Serious: Yes (Other)
  Sender: FDA-Public Use
  Company Number: TR-ARBOR PHARMACEUTICALS, LLC-TR-2020ARB000391

PATIENT
  Age: 41 Year
  Sex: Female

DRUGS (1)
  1. PROPAFENONE HYDROCHLORIDE. [Suspect]
     Active Substance: PROPAFENONE HYDROCHLORIDE
     Indication: VENTRICULAR EXTRASYSTOLES
     Dosage: 300 MG, QD

REACTIONS (2)
  - Hepatitis cholestatic [Recovered/Resolved]
  - Drug-induced liver injury [Recovered/Resolved]
